FAERS Safety Report 15349709 (Version 1)
Quarter: 2018Q3

REPORT INFORMATION
  Report Type: Spontaneous
  Country: US (occurrence: US)
  Receive Date: 20180904
  Receipt Date: 20180904
  Transmission Date: 20181010
  Serious: No
  Sender: FDA-Public Use
  Company Number: US-TARO-2018TAR00425

PATIENT
  Sex: Male

DRUGS (2)
  1. BETAMETHASONE VALERATE FOAM 0.12% [Suspect]
     Active Substance: BETAMETHASONE VALERATE
     Indication: SKIN EXFOLIATION
  2. BETAMETHASONE VALERATE FOAM 0.12% [Suspect]
     Active Substance: BETAMETHASONE VALERATE
     Indication: PRURITUS
     Dosage: UNK UNK, 1X/DAY IN THE EVENING
     Route: 061

REACTIONS (3)
  - Inappropriate schedule of drug administration [Not Recovered/Not Resolved]
  - Product packaging issue [Recovered/Resolved]
  - Drug ineffective [Not Recovered/Not Resolved]
